FAERS Safety Report 16339859 (Version 1)
Quarter: 2019Q2

REPORT INFORMATION
  Report Type: Report from Study
  Country: US (occurrence: US)
  Receive Date: 20190521
  Receipt Date: 20190521
  Transmission Date: 20190711
  Serious: Yes (Hospitalization, Other)
  Sender: FDA-Public Use
  Company Number: US-GILEAD-2019-0408669

PATIENT
  Age: 21 Year
  Sex: Female

DRUGS (23)
  1. GABAPENTIN. [Concomitant]
     Active Substance: GABAPENTIN
  2. MONTEKAST [Concomitant]
     Active Substance: MONTELUKAST SODIUM
  3. ACETAMIN [Concomitant]
     Active Substance: ACETAMINOPHEN
  4. FOCALIN XR ER [Concomitant]
  5. QVAR [Concomitant]
     Active Substance: BECLOMETHASONE DIPROPIONATE
  6. VENTOLIN [Concomitant]
     Active Substance: ALBUTEROL SULFATE
  7. ADAPALENE. [Concomitant]
     Active Substance: ADAPALENE
  8. DEPAKOTE [Concomitant]
     Active Substance: DIVALPROEX SODIUM
  9. NEXPLANON [Concomitant]
     Active Substance: ETONOGESTREL
  10. CETIRIZINE [Concomitant]
     Active Substance: CETIRIZINE HYDROCHLORIDE
  11. LORAZEPAM. [Concomitant]
     Active Substance: LORAZEPAM
  12. PRISTIQ EXTENDED-RELEASE [Concomitant]
     Active Substance: DESVENLAFAXINE SUCCINATE
  13. SYMDEKO [Concomitant]
     Active Substance: IVACAFTOR\TEZACAFTOR
  14. PULMOZYME [Concomitant]
     Active Substance: DORNASE ALFA
  15. ZENPEP [Concomitant]
     Active Substance: PANCRELIPASE AMYLASE\PANCRELIPASE LIPASE\PANCRELIPASE PROTEASE
  16. AZTREONAM LYSINE [Suspect]
     Active Substance: AZTREONAM LYSINE
     Indication: CYSTIC FIBROSIS
     Dosage: 75 MG, TID
     Route: 055
     Dates: start: 20160406
  17. MUPIROCIN. [Concomitant]
     Active Substance: MUPIROCIN
  18. SUMATRIPTAN. [Concomitant]
     Active Substance: SUMATRIPTAN
  19. TRAZODONE [Concomitant]
     Active Substance: TRAZODONE HYDROCHLORIDE
  20. MULTIVITAMINUM [Concomitant]
  21. OMEPRAZOLE. [Concomitant]
     Active Substance: OMEPRAZOLE
  22. TUMS [Concomitant]
     Active Substance: CALCIUM CARBONATE
  23. VITAMIN D3 [Concomitant]
     Active Substance: CHOLECALCIFEROL

REACTIONS (2)
  - Lung disorder [Not Recovered/Not Resolved]
  - Pneumonia [Not Recovered/Not Resolved]
